FAERS Safety Report 14605770 (Version 11)
Quarter: 2020Q4

REPORT INFORMATION
  Report Type: Report from Study
  Country: US (occurrence: US)
  Receive Date: 20180306
  Receipt Date: 20201228
  Transmission Date: 20210113
  Serious: Yes (Hospitalization, Other)
  Sender: FDA-Public Use
  Company Number: US-MALLINCKRODT-T201800843

PATIENT
  Age: 62 Year
  Sex: Male

DRUGS (15)
  1. REPOSITORY CORTICOTROPIN INJECTION [Suspect]
     Active Substance: CORTICOTROPIN
     Dosage: 40 UNITS / 0.5 ML, 2 TIMES PER WEEK (SUNDAY AND THURSDAY)
     Route: 058
  2. METOPROLOL. [Concomitant]
     Active Substance: METOPROLOL
     Indication: PRODUCT USED FOR UNKNOWN INDICATION
     Dosage: 25 MILLIGRAM, QD
     Route: 065
  3. REPOSITORY CORTICOTROPIN INJECTION [Suspect]
     Active Substance: CORTICOTROPIN
     Indication: POLYMYOSITIS
     Dosage: 80 UNITS/ML TWICE A WEEK
     Route: 058
     Dates: start: 20160524, end: 2016
  4. REPOSITORY CORTICOTROPIN INJECTION [Suspect]
     Active Substance: CORTICOTROPIN
     Dosage: UNK
     Route: 065
     Dates: start: 20201206
  5. GABAPENTIN. [Concomitant]
     Active Substance: GABAPENTIN
     Indication: PRODUCT USED FOR UNKNOWN INDICATION
     Dosage: 300 MILLIGRAM, QID (2 TABLETS)
     Route: 065
  6. DIAZEPAM. [Concomitant]
     Active Substance: DIAZEPAM
     Indication: PRODUCT USED FOR UNKNOWN INDICATION
     Dosage: 5 MILLIGRAM, AS NEEDED
     Route: 065
  7. DIOVAN [Concomitant]
     Active Substance: VALSARTAN
     Indication: PRODUCT USED FOR UNKNOWN INDICATION
     Dosage: 320 MILLIGRAM, QD
     Route: 065
  8. REPOSITORY CORTICOTROPIN INJECTION [Suspect]
     Active Substance: CORTICOTROPIN
     Dosage: 40 UNITS / .5 ML 1 TIME WEEKLY (SUNDAY)
     Route: 058
     Dates: start: 2018, end: 2018
  9. ANDROGEL [Concomitant]
     Active Substance: TESTOSTERONE
     Indication: PRODUCT USED FOR UNKNOWN INDICATION
     Dosage: UNK
     Route: 065
  10. REPOSITORY CORTICOTROPIN INJECTION [Suspect]
     Active Substance: CORTICOTROPIN
     Dosage: 40 UNITS / .5 ML 2 TIMES PER WEEK ON (SUNDAY AND THURSDAY)
     Route: 058
     Dates: start: 2018, end: 2018
  11. REPOSITORY CORTICOTROPIN INJECTION [Suspect]
     Active Substance: CORTICOTROPIN
     Dosage: 40 UNITS/ML TWICE WEEKLY
     Route: 058
     Dates: end: 201708
  12. REPOSITORY CORTICOTROPIN INJECTION [Suspect]
     Active Substance: CORTICOTROPIN
     Dosage: 40 UNITS / .5 ML TWO TIMES PER WEEK, ON THURSADAY AND SUNDAY
     Route: 058
     Dates: end: 2018
  13. REPOSITORY CORTICOTROPIN INJECTION [Suspect]
     Active Substance: CORTICOTROPIN
     Dosage: 40 UNITS / 0.5 ML, 2 TIMES PER WEEK (SUNDAY AND THURSDAY)
     Route: 058
     Dates: start: 2018, end: 201804
  14. REPOSITORY CORTICOTROPIN INJECTION [Suspect]
     Active Substance: CORTICOTROPIN
     Dosage: 40 UNITS / .5 ML TWO TIMES PER WEEK, ON THURSADAY AND SUNDAY
     Route: 058
     Dates: start: 2016
  15. PREDNISONE. [Concomitant]
     Active Substance: PREDNISONE
     Indication: PRODUCT USED FOR UNKNOWN INDICATION
     Dosage: 5 MILLIGRAM, AS NEEDED
     Route: 065

REACTIONS (11)
  - Glaucoma [Recovering/Resolving]
  - Condition aggravated [Unknown]
  - Pneumonia bacterial [Recovered/Resolved]
  - Muscle spasms [Unknown]
  - Polymyositis [Unknown]
  - Fatigue [Unknown]
  - Therapeutic response shortened [Unknown]
  - Product dose omission issue [Recovered/Resolved]
  - Musculoskeletal stiffness [Unknown]
  - COVID-19 [Recovered/Resolved]
  - Sleep disorder [Unknown]

NARRATIVE: CASE EVENT DATE: 20161001
